FAERS Safety Report 5492851-X (Version None)
Quarter: 2007Q4

REPORT INFORMATION
  Report Type: 
  Country: None (occurrence: None)
  Receive Date: 20071023
  Receipt Date: 20070110
  Transmission Date: 20080405
  Serious: No
  Sender: FDA-Public Use
  Company Number: US-BRISTOL-MYERS SQUIBB COMPANY-13640321

PATIENT
  Age: 38 Year
  Sex: Female

DRUGS (2)
  1. BUSPAR [Suspect]
     Dosage: TITRATED TO 20MG/15MG OVER A WEEK
  2. PENICILLIN G [Suspect]

REACTIONS (4)
  - DYSKINESIA [None]
  - PHARYNGOLARYNGEAL PAIN [None]
  - RASH [None]
  - URTICARIA [None]
